FAERS Safety Report 6453836-X (Version None)
Quarter: 2009Q4

REPORT INFORMATION
  Report Type: 
  Country: None (occurrence: None)
  Receive Date: 20091116
  Receipt Date: 20091110
  Transmission Date: 20100525
  Serious: Yes (Hospitalization, Disabling, Other)
  Sender: FDA-Public Use
  Company Number: 2006-06-1730

PATIENT
  Age: 70 Year
  Sex: 0
  Weight: 56 kg

DRUGS (5)
  1. PEG-INTRON [Suspect]
     Indication: HEPATITIS C
     Dosage: 100 MCG;QW;SC;  50 MCG;QW;SC
     Route: 058
     Dates: start: 20050614, end: 20050823
  2. PEG-INTRON [Suspect]
     Indication: HEPATITIS C
     Dosage: 100 MCG;QW;SC;  50 MCG;QW;SC
     Route: 058
     Dates: start: 20050830, end: 20060502
  3. REBETOL [Suspect]
     Indication: HEPATITIS C
     Dosage: 800 MG; QD;PO;  400 MCG;QD;PO
     Route: 048
     Dates: start: 20050614, end: 20050901
  4. REBETOL [Suspect]
     Indication: HEPATITIS C
     Dosage: 800 MG; QD;PO;  400 MCG;QD;PO
     Route: 048
     Dates: start: 20050902, end: 20060509
  5. ADALAT [Concomitant]

REACTIONS (3)
  - ENDOCRINE OPHTHALMOPATHY [None]
  - HYPERTHYROIDISM [None]
  - TONGUE NEOPLASM MALIGNANT STAGE UNSPECIFIED [None]
